FAERS Safety Report 7227079-6 (Version None)
Quarter: 2011Q1

REPORT INFORMATION
  Report Type: 
  Country: None (occurrence: None)
  Receive Date: 20110114
  Receipt Date: 20110111
  Transmission Date: 20110831
  Serious: Yes (Death)
  Sender: FDA-Public Use
  Company Number: PL-ROCHE-752339

PATIENT
  Age: 26 Year
  Sex: Male

DRUGS (1)
  1. HERCEPTIN [Suspect]
     Indication: GASTRIC CANCER
     Route: 065

REACTIONS (1)
  - GENERAL PHYSICAL HEALTH DETERIORATION [None]
